FAERS Safety Report 17531323 (Version 1)
Quarter: 2020Q1

REPORT INFORMATION
  Report Type: Spontaneous
  Country: US (occurrence: US)
  Receive Date: 20200311
  Receipt Date: 20200311
  Transmission Date: 20200409
  Serious: Yes (Hospitalization, Other)
  Sender: FDA-Public Use
  Company Number: None

PATIENT
  Age: 41 Year
  Sex: Female
  Weight: 58.5 kg

DRUGS (12)
  1. PIPITOR [Concomitant]
  2. ZYRTEC [Concomitant]
     Active Substance: CETIRIZINE HYDROCHLORIDE
  3. MONTELUKAST [Suspect]
     Active Substance: MONTELUKAST SODIUM
     Indication: HYPERSENSITIVITY
     Dosage: ?          QUANTITY:1 TABLET(S);?
     Route: 048
     Dates: start: 20190107, end: 20200311
  4. GABAPENTIN. [Concomitant]
     Active Substance: GABAPENTIN
  5. IBUPROFEN. [Concomitant]
     Active Substance: IBUPROFEN
  6. TUMS [Concomitant]
     Active Substance: CALCIUM CARBONATE
  7. LAMICTAL [Concomitant]
     Active Substance: LAMOTRIGINE
  8. XANAX [Concomitant]
     Active Substance: ALPRAZOLAM
  9. ACYCLOVIR. [Concomitant]
     Active Substance: ACYCLOVIR
  10. ACETAMINOPHEN. [Concomitant]
     Active Substance: ACETAMINOPHEN
  11. BENADRYL [Concomitant]
     Active Substance: DIPHENHYDRAMINE HYDROCHLORIDE
  12. PEPTO-BISMOL [Concomitant]
     Active Substance: BISMUTH SUBSALICYLATE

REACTIONS (10)
  - Dizziness [None]
  - Thirst [None]
  - Stress [None]
  - Urinary incontinence [None]
  - Hallucination [None]
  - Disorientation [None]
  - Anxiety [None]
  - Fall [None]
  - Psychogenic seizure [None]
  - Paraesthesia [None]

NARRATIVE: CASE EVENT DATE: 20190304
